FAERS Safety Report 24720297 (Version 1)
Quarter: 2024Q4

REPORT INFORMATION
  Report Type: Spontaneous
  Country: US (occurrence: US)
  Receive Date: 20241211
  Receipt Date: 20241211
  Transmission Date: 20250114
  Serious: No
  Sender: STALLERGENES
  Company Number: US-AIMMUNE THERAPEUTICS, INC.-2024AIMT00672

PATIENT
  Age: 14 Year
  Sex: Male

DRUGS (7)
  1. PALFORZIA [Suspect]
     Active Substance: PEANUT
     Indication: Food allergy
     Dosage: IDE (0.5MG-6MG), ONCE
  2. PALFORZIA [Suspect]
     Active Substance: PEANUT
     Dosage: 80MG, 1X/DAY
     Dates: end: 20240410
  3. PALFORZIA [Suspect]
     Active Substance: PEANUT
     Dosage: 80 MG, ONCE, LAST DOSE PRIOR EVENT
     Dates: start: 20240410, end: 20240410
  4. PALFORZIA [Suspect]
     Active Substance: PEANUT
     Dosage: 40 MG, 1X/DAY
     Dates: start: 20240412, end: 20240412
  5. PALFORZIA [Suspect]
     Active Substance: PEANUT
     Dosage: 80 MG, 1X/DAY
  6. MOMETASONE FUROATE [Concomitant]
     Active Substance: MOMETASONE FUROATE
     Indication: Product used for unknown indication
  7. TYLENOL [Concomitant]
     Active Substance: ACETAMINOPHEN
     Indication: Product used for unknown indication
     Dosage: TAB 500MG/RR

REACTIONS (2)
  - Nasopharyngitis [Not Recovered/Not Resolved]
  - Pyrexia [Not Recovered/Not Resolved]

NARRATIVE: CASE EVENT DATE: 20240410
